FAERS Safety Report 11909632 (Version 3)
Quarter: 2016Q1

REPORT INFORMATION
  Report Type: Report from Study
  Country: DE (occurrence: DE)
  Receive Date: 20160112
  Receipt Date: 20160208
  Transmission Date: 20160526
  Serious: Yes (Death, Hospitalization)
  Sender: FDA-Public Use
  Company Number: DE-ROCHE-1679424

PATIENT
  Age: 78 Year
  Sex: Female
  Weight: 56.1 kg

DRUGS (16)
  1. BEVACIZUMAB [Suspect]
     Active Substance: BEVACIZUMAB
     Route: 042
     Dates: start: 20151022, end: 20151022
  2. 5-FLUOROURACIL [Concomitant]
     Active Substance: FLUOROURACIL
     Dosage: 330-322
     Route: 040
     Dates: start: 20150430, end: 20150620
  3. 5-FLUOROURACIL [Concomitant]
     Active Substance: FLUOROURACIL
     Route: 041
     Dates: start: 20150116, end: 20150118
  4. 5-FLUOROURACIL [Concomitant]
     Active Substance: FLUOROURACIL
     Dosage: 990-996  MG
     Route: 041
     Dates: start: 20150707, end: 20150724
  5. OXALIPLATIN. [Concomitant]
     Active Substance: OXALIPLATIN
     Dosage: 62.2-68.4 MG?3 WEEKS INTERVAL BETWEEN 20-MAY AND 05-JUN-2015
     Route: 042
     Dates: start: 20150430, end: 20150619
  6. 5-FLUOROURACIL [Concomitant]
     Active Substance: FLUOROURACIL
     Dosage: 636-644 MG
     Route: 040
     Dates: start: 20150202, end: 20150411
  7. 5-FLUOROURACIL [Concomitant]
     Active Substance: FLUOROURACIL
     Dosage: 954-966 MG
     Route: 041
     Dates: start: 20150202, end: 20150412
  8. FOLINIC ACID [Concomitant]
     Active Substance: LEUCOVORIN
     Dosage: 330-332 MG
     Route: 042
     Dates: start: 20150707, end: 20150722
  9. OXALIPLATIN. [Concomitant]
     Active Substance: OXALIPLATIN
     Indication: COLORECTAL CANCER
     Dosage: 102.6-136 MG
     Route: 042
     Dates: start: 20150116, end: 20150410
  10. FOLINIC ACID [Concomitant]
     Active Substance: LEUCOVORIN
     Indication: COLORECTAL CANCER
     Dosage: 241.5-320 MG
     Route: 042
     Dates: start: 20150116, end: 20150411
  11. IRINOTECAN [Concomitant]
     Active Substance: IRINOTECAN
     Indication: COLORECTAL CANCER
     Dosage: 148-150 MG
     Route: 042
     Dates: start: 20150707, end: 20150722
  12. BEVACIZUMAB [Suspect]
     Active Substance: BEVACIZUMAB
     Indication: COLORECTAL CANCER
     Route: 042
     Dates: start: 20150116, end: 20150116
  13. 5-FLUOROURACIL [Concomitant]
     Active Substance: FLUOROURACIL
     Indication: COLORECTAL CANCER
     Route: 040
     Dates: start: 20150116, end: 20150117
  14. 5-FLUOROURACIL [Concomitant]
     Active Substance: FLUOROURACIL
     Dosage: 330-332 MG
     Route: 040
     Dates: start: 20150707, end: 20150722
  15. 5-FLUOROURACIL [Concomitant]
     Active Substance: FLUOROURACIL
     Dosage: 474-489 MG
     Route: 041
     Dates: start: 20150430, end: 20150621
  16. FOLINIC ACID [Concomitant]
     Active Substance: LEUCOVORIN
     Dosage: 158-163 MG
     Route: 042
     Dates: start: 20150430, end: 20150620

REACTIONS (2)
  - General physical health deterioration [Fatal]
  - Hypoaesthesia [Not Recovered/Not Resolved]

NARRATIVE: CASE EVENT DATE: 20151110
